FAERS Safety Report 5935678-4 (Version None)
Quarter: 2008Q4

REPORT INFORMATION
  Report Type: 
  Country: None (occurrence: None)
  Receive Date: 20081028
  Receipt Date: 20081020
  Transmission Date: 20090506
  Serious: Yes (Hospitalization, Other)
  Sender: FDA-Public Use
  Company Number: 2008AP002825

PATIENT
  Age: 46 Year
  Sex: Female
  Weight: 177 kg

DRUGS (14)
  1. GABAPENTIN [Suspect]
     Indication: DIABETIC NEUROPATHY
     Dosage: 300 MG; TID
  2. FUROSEMIDE [Suspect]
     Indication: HYPERTENSION
     Dosage: 80 MG; QD
  3. LISINOPRIL [Concomitant]
  4. HYDROCHLOROTHIAZIDE [Concomitant]
  5. ATORVASTATIN CALCIUM [Concomitant]
  6. OMEPRAZOLE [Concomitant]
  7. ALBUTEROL SULFATE [Concomitant]
  8. METFORMIN HCL [Concomitant]
  9. INSULIN [Concomitant]
  10. OXYCODONE HCL [Concomitant]
  11. ALPRAZOLAM [Concomitant]
  12. VENLAFAXINE HCL [Concomitant]
  13. SALMETEROL [Concomitant]
  14. FLUTICASONE PROPIONATE [Concomitant]

REACTIONS (23)
  - CARBON DIOXIDE DECREASED [None]
  - CHEST PAIN [None]
  - CONFUSIONAL STATE [None]
  - DEAFNESS [None]
  - DRUG LEVEL ABOVE THERAPEUTIC [None]
  - DRUG TOXICITY [None]
  - DYSPNOEA [None]
  - HAEMODIALYSIS [None]
  - HAEMOGLOBIN DECREASED [None]
  - HALLUCINATION [None]
  - HEADACHE [None]
  - HYPERHIDROSIS [None]
  - HYPOACUSIS [None]
  - HYPOVOLAEMIA [None]
  - MYOCLONUS [None]
  - PLATELET COUNT INCREASED [None]
  - PNEUMONIA [None]
  - REFUSAL OF TREATMENT BY PATIENT [None]
  - RENAL FAILURE ACUTE [None]
  - RENAL TUBULAR NECROSIS [None]
  - URINARY TRACT INFECTION [None]
  - VISION BLURRED [None]
  - WHITE BLOOD CELL COUNT INCREASED [None]
